FAERS Safety Report 12217346 (Version 2)
Quarter: 2016Q3

REPORT INFORMATION
  Report Type: Spontaneous
  Country: KR (occurrence: KR)
  Receive Date: 20160329
  Receipt Date: 20160818
  Transmission Date: 20161109
  Serious: Yes (Hospitalization, Other)
  Sender: FDA-Public Use
  Company Number: KR-GLAXOSMITHKLINE-KR2016GSK040879

PATIENT
  Age: 2 Decade
  Sex: Male

DRUGS (1)
  1. VENTOLIN [Suspect]
     Active Substance: ALBUTEROL SULFATE
     Indication: PRODUCT USED FOR UNKNOWN INDICATION
     Route: 048

REACTIONS (5)
  - Ill-defined disorder [Recovering/Resolving]
  - Dizziness [Recovering/Resolving]
  - Incorrect route of drug administration [Unknown]
  - Heart rate increased [Recovering/Resolving]
  - Depressed level of consciousness [Recovering/Resolving]
